FAERS Safety Report 9493269 (Version 3)
Quarter: 2014Q1

REPORT INFORMATION
  Report Type: Report from Study
  Country: US (occurrence: US)
  Receive Date: 20130902
  Receipt Date: 20140220
  Transmission Date: 20141002
  Serious: Yes (Death, Other)
  Sender: FDA-Public Use
  Company Number: PHEH2013US018442

PATIENT
  Age: 82 Year
  Sex: Male
  Weight: 85.2 kg

DRUGS (7)
  1. AFINITOR [Suspect]
     Indication: METASTATIC RENAL CELL CARCINOMA
     Dosage: 5 MG, DAILY
     Route: 048
     Dates: start: 20130711, end: 20130729
  2. AFINITOR [Suspect]
     Dosage: 5 MG, DAILY ALTERNATING WITH 10 MG DAILY
     Route: 048
     Dates: start: 20130729, end: 20130820
  3. DULOXETINE [Concomitant]
     Route: 048
  4. FENTANYL [Concomitant]
  5. AMLODIPINE [Concomitant]
     Route: 048
  6. LYRICA [Concomitant]
     Route: 048
  7. FLOMAX [Concomitant]
     Route: 048

REACTIONS (7)
  - Death [Fatal]
  - Cognitive disorder [Unknown]
  - Blood glucose increased [Unknown]
  - Metastases to adrenals [Unknown]
  - Pain [Unknown]
  - Stomatitis [Unknown]
  - Asthenia [Unknown]
